FAERS Safety Report 9265115 (Version 1)
Quarter: 2013Q2

REPORT INFORMATION
  Report Type: Spontaneous
  Country: US (occurrence: US)
  Receive Date: 20130501
  Receipt Date: 20130501
  Transmission Date: 20140414
  Serious: No
  Sender: FDA-Public Use
  Company Number: US-PFIZER INC-2013131097

PATIENT
  Age: 49 Year
  Sex: Female
  Weight: 58 kg

DRUGS (5)
  1. SOMAVERT [Suspect]
     Dosage: 15 MG, 1X/DAY
     Route: 058
  2. PREDNISONE [Concomitant]
     Dosage: 20 MG, UNK
  3. SYNTHROID [Concomitant]
     Dosage: 200 UG, UNK
  4. SIMVASTATIN [Concomitant]
     Dosage: 40 MG, UNK
  5. HYDROCHLOROTHIAZIDE WITH TRIAMTERENE [Concomitant]
     Dosage: 25/50 MG, UNK

REACTIONS (2)
  - Blood pressure increased [Unknown]
  - Blood glucose increased [Unknown]
